FAERS Safety Report 25467687 (Version 3)
Quarter: 2025Q3

REPORT INFORMATION
  Report Type: Report from Study
  Country: US (occurrence: US)
  Receive Date: 20250623
  Receipt Date: 20250730
  Transmission Date: 20251020
  Serious: Yes (Death, Other)
  Sender: BIOGEN
  Company Number: US-BIOGEN-2025BI01314479

PATIENT
  Sex: Male

DRUGS (2)
  1. TYSABRI [Suspect]
     Active Substance: NATALIZUMAB
     Indication: Multiple sclerosis
     Route: 050
     Dates: start: 20210127, end: 20220114
  2. TYSABRI [Suspect]
     Active Substance: NATALIZUMAB
     Route: 050
     Dates: start: 20230925, end: 20250522

REACTIONS (4)
  - Death [Fatal]
  - Wound sepsis [Unknown]
  - Chemical burn [Unknown]
  - Impaired healing [Unknown]
